FAERS Safety Report 14655918 (Version 2)
Quarter: 2018Q3

REPORT INFORMATION
  Report Type: Spontaneous
  Country: US (occurrence: US)
  Receive Date: 20180319
  Receipt Date: 20180706
  Transmission Date: 20181010
  Serious: Yes (Other)
  Sender: FDA-Public Use
  Company Number: US-SA-2018SA068115

PATIENT
  Age: 47 Year
  Sex: Male

DRUGS (7)
  1. LISINOPRIL. [Concomitant]
     Active Substance: LISINOPRIL
     Dosage: UNK UNK,UNK
     Route: 065
  2. ALLOPURINOL. [Concomitant]
     Active Substance: ALLOPURINOL
  3. AUBAGIO [Suspect]
     Active Substance: TERIFLUNOMIDE
     Dosage: 14 MG,QD
     Route: 048
     Dates: start: 20180222
  4. ERGOCALCIFEROL. [Concomitant]
     Active Substance: ERGOCALCIFEROL
     Dosage: UNK UNK,UNK
     Route: 065
  5. BACLOFEN. [Concomitant]
     Active Substance: BACLOFEN
     Dosage: UNK UNK,UNK
     Route: 065
  6. MECLIZINE HYDROCHLORIDE. [Concomitant]
     Active Substance: MECLIZINE HYDROCHLORIDE
     Dosage: UNK UNK,UNK
     Route: 065
  7. AUBAGIO [Suspect]
     Active Substance: TERIFLUNOMIDE
     Dosage: UNK UNK,UNK
     Route: 048
     Dates: start: 201802

REACTIONS (12)
  - Asthenia [Not Recovered/Not Resolved]
  - Balance disorder [Not Recovered/Not Resolved]
  - Limb discomfort [Not Recovered/Not Resolved]
  - Stress [Not Recovered/Not Resolved]
  - Mobility decreased [Not Recovered/Not Resolved]
  - Disturbance in attention [Not Recovered/Not Resolved]
  - Disturbance in attention [Not Recovered/Not Resolved]
  - Speech disorder [Not Recovered/Not Resolved]
  - Asthenopia [Not Recovered/Not Resolved]
  - Gout [Not Recovered/Not Resolved]
  - Feeling hot [Not Recovered/Not Resolved]
  - Cellulitis [Not Recovered/Not Resolved]

NARRATIVE: CASE EVENT DATE: 2018
